FAERS Safety Report 25158787 (Version 2)
Quarter: 2025Q2

REPORT INFORMATION
  Report Type: Spontaneous
  Country: US (occurrence: US)
  Receive Date: 20250404
  Receipt Date: 20250411
  Transmission Date: 20250716
  Serious: Yes (Other)
  Sender: DR REDDYS
  Company Number: US-DRL-USA-USA/2025/04/005028

PATIENT
  Age: 4 Year
  Sex: Male

DRUGS (3)
  1. CLOFARABINE [Suspect]
     Active Substance: CLOFARABINE
     Indication: B-cell type acute leukaemia
  2. CLOFARABINE [Suspect]
     Active Substance: CLOFARABINE
  3. PREDNISONE [Concomitant]
     Active Substance: PREDNISONE
     Indication: B-cell type acute leukaemia

REACTIONS (5)
  - Pancytopenia [Unknown]
  - Therapy non-responder [Unknown]
  - Nausea [Unknown]
  - Vomiting [Unknown]
  - Malnutrition [Unknown]
